FAERS Safety Report 8232413-4 (Version None)
Quarter: 2012Q1

REPORT INFORMATION
  Report Type: 
  Country: None (occurrence: None)
  Receive Date: 20120320
  Receipt Date: 20120308
  Transmission Date: 20120608
  Serious: Yes (Hospitalization)
  Sender: FDA-Public Use
  Company Number: 2012SP013137

PATIENT

DRUGS (1)
  1. SAPHRIS [Suspect]
     Indication: SCHIZOPHRENIA

REACTIONS (2)
  - PSYCHOTIC DISORDER [None]
  - CONDITION AGGRAVATED [None]
